FAERS Safety Report 8984396 (Version 2)
Quarter: 2013Q1

REPORT INFORMATION
  Report Type: Spontaneous
  Country: US (occurrence: US)
  Receive Date: 20121226
  Receipt Date: 20130130
  Transmission Date: 20140127
  Serious: Yes (Life-Threatening, Hospitalization, Other)
  Sender: FDA-Public Use
  Company Number: US-JNJFOC-20121208228

PATIENT
  Age: 58 Year
  Sex: Male
  Weight: 111 kg

DRUGS (7)
  1. XARELTO [Suspect]
     Indication: THROMBOSIS PROPHYLAXIS
     Route: 048
     Dates: start: 20121117, end: 20121201
  2. XARELTO [Suspect]
     Indication: KNEE ARTHROPLASTY
     Route: 048
     Dates: start: 20121117, end: 20121201
  3. METHOTREXATE [Concomitant]
     Indication: ARTHRITIS
     Route: 065
  4. PREDNISONE [Concomitant]
     Indication: ARTHRITIS
     Route: 065
  5. FOLIC ACID [Concomitant]
     Indication: ANAEMIA
     Route: 065
  6. FISH OIL [Concomitant]
     Indication: NUTRITIONAL SUPPLEMENTATION
     Route: 065
  7. PRILOSEC [Concomitant]
     Indication: GASTROOESOPHAGEAL REFLUX DISEASE
     Route: 065

REACTIONS (2)
  - Pulmonary embolism [Recovering/Resolving]
  - Deep vein thrombosis [Recovering/Resolving]
